FAERS Safety Report 22594961 (Version 1)
Quarter: 2023Q2

REPORT INFORMATION
  Report Type: Spontaneous
  Country: US (occurrence: US)
  Receive Date: 20230613
  Receipt Date: 20230613
  Transmission Date: 20230722
  Serious: Yes (Other)
  Sender: FDA-Public Use
  Company Number: US-BRISTOL-MYERS SQUIBB COMPANY-2023-082635

PATIENT
  Age: 67 Year
  Sex: Female
  Weight: 85.28 kg

DRUGS (1)
  1. ORENCIA [Suspect]
     Active Substance: ABATACEPT
     Indication: Rheumatoid arthritis
     Dosage: DOSE : 750 MG;     FREQ : EVERY 4 WEEKS
     Route: 042

REACTIONS (1)
  - Adverse event [Unknown]
